FAERS Safety Report 18252562 (Version 1)
Quarter: 2020Q3

REPORT INFORMATION
  Report Type: Report from Study
  Country: CA (occurrence: CA)
  Receive Date: 20200910
  Receipt Date: 20200910
  Transmission Date: 20201103
  Serious: Yes (Other)
  Sender: FDA-Public Use
  Company Number: CA-ACCORD-200001

PATIENT
  Sex: Female

DRUGS (5)
  1. METHOTREXATE. [Suspect]
     Active Substance: METHOTREXATE
     Indication: PRODUCT USED FOR UNKNOWN INDICATION
     Route: 058
  2. ETANERCEPT [Suspect]
     Active Substance: ETANERCEPT
     Indication: PRODUCT USED FOR UNKNOWN INDICATION
     Dosage: 1 EVERY 1 WEEKS
     Route: 058
  3. BISOPROLOL [Concomitant]
     Active Substance: BISOPROLOL
  4. PREDNISONE. [Concomitant]
     Active Substance: PREDNISONE
  5. SULFASALAZINE. [Concomitant]
     Active Substance: SULFASALAZINE
     Route: 048

REACTIONS (11)
  - Vertigo [Unknown]
  - Tendonitis [Unknown]
  - Intervertebral disc degeneration [Unknown]
  - Von Hippel-Lindau disease [Unknown]
  - Drug ineffective [Unknown]
  - Psoriasis [Unknown]
  - Renal disorder [Unknown]
  - Sjogren^s syndrome [Unknown]
  - Dry eye [Unknown]
  - Dyspnoea [Unknown]
  - Rotator cuff syndrome [Unknown]
